FAERS Safety Report 4917076-5 (Version None)
Quarter: 2006Q1

REPORT INFORMATION
  Report Type: 
  Country: None (occurrence: None)
  Receive Date: 20060214
  Receipt Date: 20060208
  Transmission Date: 20060701
  Serious: Yes (Hospitalization)
  Sender: FDA-Public Use
  Company Number: TAP2005Q01755

PATIENT
  Age: 77 Year
  Sex: Male

DRUGS (9)
  1. LEUPRORELIN DEPOT (4M) (LEUPROLIDE ACETATE) [Suspect]
     Indication: PROSTATE CANCER
     Dosage: 30 MG, 1 IN 4 M, INTRAMUSCULAR
     Route: 030
     Dates: start: 20050902
  2. CASODEX [Concomitant]
  3. FLOMAX [Concomitant]
  4. ASPIRIN [Concomitant]
  5. PLAVIX [Concomitant]
  6. CALCIUM AND VITAMIN D (CALCIUM D3) [Concomitant]
  7. FLOMAX (MORNIFLUMATE) [Concomitant]
  8. PRAVACHOL [Concomitant]
  9. ATIVAN [Concomitant]

REACTIONS (14)
  - BRAIN OEDEMA [None]
  - CHEST PAIN [None]
  - CONFUSIONAL STATE [None]
  - DISEASE RECURRENCE [None]
  - DIZZINESS [None]
  - FALL [None]
  - GENITAL BURNING SENSATION [None]
  - HYPOAESTHESIA [None]
  - INSOMNIA [None]
  - PAIN [None]
  - PARAESTHESIA [None]
  - PRURITUS GENITAL [None]
  - SUBDURAL HAEMATOMA [None]
  - URINARY TRACT INFECTION [None]
